FAERS Safety Report 8884739 (Version 1)
Quarter: 2012Q4

REPORT INFORMATION
  Report Type: 
  Country: US (occurrence: US)
  Receive Date: 20121102
  Receipt Date: 20121102
  Transmission Date: 20130627
  Serious: Yes (Other)
  Sender: FDA-Public Use
  Company Number: US-NOVOPROD-363207

PATIENT
  Age: 65 Year
  Sex: Female

DRUGS (3)
  1. NOVOLOG FLEXPEN [Suspect]
     Indication: TYPE 2 DIABETES MELLITUS
     Dosage: UNK
     Route: 058
  2. LANTUS [Suspect]
     Indication: TYPE 2 DIABETES MELLITUS
     Dosage: 42 U, qd
     Route: 058
  3. INSULIN, REGULAR [Suspect]
     Indication: TYPE 2 DIABETES MELLITUS
     Dosage: UNK
     Route: 058

REACTIONS (4)
  - Pancreatic neoplasm [Unknown]
  - Renal disorder [Unknown]
  - Drug hypersensitivity [Not Recovered/Not Resolved]
  - Pancreatic carcinoma [None]
